FAERS Safety Report 5297001-0 (Version None)
Quarter: 2007Q1

REPORT INFORMATION
  Report Type: 
  Country: None (occurrence: None)
  Receive Date: 20070201
  Receipt Date: 20061006
  Transmission Date: 20070707
  Serious: No
  Sender: FDA-Public Use
  Company Number: 2006PV022660

PATIENT
  Age: 83 Year
  Sex: Female

DRUGS (6)
  1. BYETTA [Suspect]
     Indication: DIABETES MELLITUS NON-INSULIN-DEPENDENT
     Dosage: 5 MCG; BID; SC
     Route: 058
     Dates: start: 20060901, end: 20061004
  2. PRANDIN [Concomitant]
  3. GLUCOPHAGE [Concomitant]
  4. ACTOS [Concomitant]
  5. NEXIUM [Concomitant]
  6. FEMARA [Concomitant]

REACTIONS (6)
  - CHOKING [None]
  - COUGH [None]
  - FOOD AVERSION [None]
  - NAUSEA [None]
  - THROAT IRRITATION [None]
  - VOMITING [None]
